FAERS Safety Report 4646758-8 (Version None)
Quarter: 2005Q2

REPORT INFORMATION
  Report Type: 
  Country: None (occurrence: None)
  Receive Date: 20050425
  Receipt Date: 20050425
  Transmission Date: 20051028
  Serious: Yes (Hospitalization, Disabling)
  Sender: FDA-Public Use
  Company Number: None

PATIENT
  Age: 45 Year
  Sex: Female
  Weight: 88.4514 kg

DRUGS (1)
  1. CITALOPRAM   20MG [Suspect]
     Indication: ANTIDEPRESSANT THERAPY
     Dosage: 10MG  QD   ORAL
     Route: 048
     Dates: start: 20041027, end: 20041028

REACTIONS (2)
  - DYSTONIA [None]
  - TRISMUS [None]
